FAERS Safety Report 8315154-4 (Version None)
Quarter: 2012Q2

REPORT INFORMATION
  Report Type: 
  Country: None (occurrence: None)
  Receive Date: 20120426
  Receipt Date: 20120418
  Transmission Date: 20120825
  Serious: Yes (Other)
  Sender: FDA-Public Use
  Company Number: US-GLAXOSMITHKLINE-A0974182A

PATIENT
  Age: 16 Year
  Sex: Male

DRUGS (5)
  1. SOLODYN [Concomitant]
  2. ANTIDEPRESSANT [Concomitant]
  3. LAMICTAL [Suspect]
     Indication: CONVULSION
     Route: 048
     Dates: start: 20100422, end: 20100630
  4. RITALIN [Concomitant]
  5. GEODON [Concomitant]

REACTIONS (3)
  - LIVER FUNCTION TEST ABNORMAL [None]
  - RASH [None]
  - PAINFUL RESPIRATION [None]
